FAERS Safety Report 8447767-3 (Version None)
Quarter: 2012Q2

REPORT INFORMATION
  Report Type: 
  Country: None (occurrence: None)
  Receive Date: 20120619
  Receipt Date: 20110815
  Transmission Date: 20120825
  Serious: No
  Sender: FDA-Public Use
  Company Number: US-COVIDIEN/TYCO HEALTHCARE/MALLINCKRODT-T201101596

PATIENT
  Age: 41 Year
  Sex: Female

DRUGS (3)
  1. TECHNESCAN MAG3 [Suspect]
     Indication: RENAL SCAN
     Dosage: UNK
     Dates: start: 20110815, end: 20110815
  2. ULTRA-TECHNEKOW [Concomitant]
     Indication: RENAL SCAN
     Dosage: UNK
     Dates: start: 20110815, end: 20110815
  3. LASIX [Concomitant]
     Indication: RENAL SCAN
     Dosage: UNK
     Dates: start: 20110815, end: 20110815

REACTIONS (1)
  - DRUG INEFFECTIVE [None]
